FAERS Safety Report 5709760-0 (Version None)
Quarter: 2008Q2

REPORT INFORMATION
  Report Type: 
  Country: None (occurrence: None)
  Receive Date: 20080418
  Receipt Date: 20080408
  Transmission Date: 20081010
  Serious: Yes (Hospitalization, Other)
  Sender: FDA-Public Use
  Company Number: US-AMGEN-QUU273472

PATIENT
  Sex: Female

DRUGS (2)
  1. ENBREL [Suspect]
     Indication: RHEUMATOID ARTHRITIS
     Route: 058
     Dates: start: 20021201
  2. METHOTREXATE [Concomitant]
     Dates: start: 20001201

REACTIONS (5)
  - ABDOMINAL PAIN UPPER [None]
  - ARTHRITIS BACTERIAL [None]
  - COELIAC DISEASE [None]
  - STAPHYLOCOCCAL BACTERAEMIA [None]
  - WEIGHT DECREASED [None]
